FAERS Safety Report 18234502 (Version 1)
Quarter: 2020Q3

REPORT INFORMATION
  Report Type: Spontaneous
  Country: US (occurrence: US)
  Receive Date: 20200904
  Receipt Date: 20200904
  Transmission Date: 20201103
  Serious: No
  Sender: FDA-Public Use
  Company Number: US-BEH-2020121804

PATIENT
  Sex: Female

DRUGS (3)
  1. PRIVIGEN [Suspect]
     Active Substance: HUMAN IMMUNOGLOBULIN G
     Indication: STIFF PERSON SYNDROME
     Dosage: 35 GRAM, EVERY 6 WEEKS
     Route: 042
     Dates: start: 20200313
  2. PRIVIGEN [Suspect]
     Active Substance: HUMAN IMMUNOGLOBULIN G
     Dosage: 5 GRAMS X 3 DAYS, EVERY 12 WEEKS
     Route: 042
     Dates: start: 202003
  3. PRIVIGEN [Suspect]
     Active Substance: HUMAN IMMUNOGLOBULIN G
     Dosage: 20 GRAMS X 3 DAYS, EVERY 12 WEEKS
     Route: 042
     Dates: start: 202003

REACTIONS (3)
  - Incorrect drug administration rate [Unknown]
  - Influenza like illness [Unknown]
  - Malaise [Unknown]
